FAERS Safety Report 6108867-6 (Version None)
Quarter: 2009Q1

REPORT INFORMATION
  Report Type: 
  Country: None (occurrence: None)
  Receive Date: 20090310
  Receipt Date: 20090226
  Transmission Date: 20090719
  Serious: Yes (Death, Hospitalization)
  Sender: FDA-Public Use
  Company Number: DE-JNJFOC-20090300503

PATIENT
  Age: 64 Year
  Sex: Male
  Weight: 104 kg

DRUGS (5)
  1. REMICADE [Suspect]
     Indication: RHEUMATOID ARTHRITIS
     Route: 042
  2. METHOTREXATE [Suspect]
     Indication: RHEUMATOID ARTHRITIS
     Dosage: RECEIVED FOR YEARS
     Route: 058
  3. ANTIBIOTICS [Suspect]
     Indication: DRUG USE FOR UNKNOWN INDICATION
  4. STERIODS [Suspect]
     Indication: DRUG USE FOR UNKNOWN INDICATION
  5. TORSEMIDE [Concomitant]

REACTIONS (4)
  - ALVEOLITIS [None]
  - LUNG INFECTION [None]
  - PNEUMONITIS [None]
  - PULMONARY EMBOLISM [None]
